FAERS Safety Report 22379619 (Version 2)
Quarter: 2023Q2

REPORT INFORMATION
  Report Type: Report from Study
  Country: GB (occurrence: None)
  Receive Date: 20230529
  Receipt Date: 20230621
  Transmission Date: 20230721
  Serious: Yes (Hospitalization)
  Sender: FDA-Public Use
  Company Number: 2023A120093

PATIENT
  Sex: Female

DRUGS (1)
  1. FASENRA [Suspect]
     Active Substance: BENRALIZUMAB
     Indication: Asthma
     Dosage: 30.0MG UNKNOWN
     Route: 058

REACTIONS (6)
  - Asthma [Unknown]
  - Drug ineffective [Unknown]
  - Incorrect dose administered [Unknown]
  - Chest discomfort [Unknown]
  - Cough [Unknown]
  - Feeling abnormal [Unknown]
